FAERS Safety Report 7296585-0 (Version None)
Quarter: 2011Q1

REPORT INFORMATION
  Report Type: 
  Country: None (occurrence: None)
  Receive Date: 20110216
  Receipt Date: 20110207
  Transmission Date: 20110831
  Serious: Yes (Hospitalization)
  Sender: FDA-Public Use
  Company Number: PHHY2010CA31131

PATIENT
  Sex: Female

DRUGS (2)
  1. PEPTO-BISMOL [Concomitant]
     Dosage: UNK
  2. ACLASTA [Suspect]
     Indication: OSTEOPOROSIS
     Dosage: 5 MG (ONCE AYEAR)
     Route: 042
     Dates: start: 20100503

REACTIONS (3)
  - URINARY TRACT INFECTION [None]
  - ARTHRALGIA [None]
  - INFLUENZA LIKE ILLNESS [None]
